FAERS Safety Report 4847330-7 (Version None)
Quarter: 2005Q4

REPORT INFORMATION
  Report Type: 
  Country: None (occurrence: None)
  Receive Date: 20051207
  Receipt Date: 20051128
  Transmission Date: 20060501
  Serious: Yes (Hospitalization)
  Sender: FDA-Public Use
  Company Number: US-BRISTOL-MYERS SQUIBB COMPANY-13197488

PATIENT
  Age: 74 Year
  Sex: Female

DRUGS (3)
  1. CARDIOLITE [Suspect]
     Dosage: TWO DOSES:  13 MCI DURING REST PORTION OF TEST, AND 35 MCI DURING STRESS PORTION OF TEST
     Dates: start: 20051122, end: 20051122
  2. PERSANTINE [Concomitant]
     Route: 042
     Dates: start: 20051101, end: 20051122
  3. AMINOPHYLLINE [Concomitant]
     Dates: start: 20051101, end: 20051122

REACTIONS (3)
  - BLOOD GLUCOSE INCREASED [None]
  - PRURITUS GENERALISED [None]
  - SWELLING FACE [None]
